FAERS Safety Report 9421744 (Version 2)
Quarter: 2013Q3

REPORT INFORMATION
  Report Type: Spontaneous
  Country: US (occurrence: US)
  Receive Date: 20130726
  Receipt Date: 20130826
  Transmission Date: 20140515
  Serious: No
  Sender: FDA-Public Use
  Company Number: US-009507513-1307USA013112

PATIENT
  Sex: Female
  Weight: 134.24 kg

DRUGS (1)
  1. IMPLANON [Suspect]
     Dosage: 1 STANDARD DOSE OF 1
     Route: 059
     Dates: start: 20120604, end: 20130712

REACTIONS (3)
  - Device kink [Recovered/Resolved]
  - No adverse event [Unknown]
  - Product quality issue [Unknown]
